FAERS Safety Report 12838461 (Version 2)
Quarter: 2016Q4

REPORT INFORMATION
  Report Type: Spontaneous
  Country: NO (occurrence: NO)
  Receive Date: 20161012
  Receipt Date: 20161020
  Transmission Date: 20170207
  Serious: Yes (Hospitalization)
  Sender: FDA-Public Use
  Company Number: NO-TEVA-698691ACC

PATIENT
  Sex: Female

DRUGS (11)
  1. TACROLIMUS. [Suspect]
     Active Substance: TACROLIMUS
     Dosage: 12 MILLIGRAM DAILY;
     Route: 065
     Dates: start: 199412
  2. TACROLIMUS. [Suspect]
     Active Substance: TACROLIMUS
     Dosage: 8MG + 7MG, UNK FREQ.AT THE END OF THE SECOND TRIMESTER
     Route: 065
  3. METHYLDOPA. [Concomitant]
     Active Substance: METHYLDOPA
     Indication: HYPERTENSIVE HEART DISEASE
     Dosage: 750 MILLIGRAM DAILY; 750 MG, ONCE DAILY, DURING LAST TRIMESTER
     Route: 065
  4. PREDNISOLONE. [Concomitant]
     Active Substance: PREDNISOLONE
     Indication: RENAL AND PANCREAS TRANSPLANT
     Dosage: 7.5 MILLIGRAM DAILY;
     Route: 065
     Dates: start: 199412
  5. OKT3 [Concomitant]
     Active Substance: MUROMONAB-CD3
     Indication: RENAL AND PANCREAS TRANSPLANT
     Dosage: 70 MG, DURING THE FIRST 6 WEEKS
     Route: 065
  6. TACROLIMUS. [Suspect]
     Active Substance: TACROLIMUS
     Indication: RENAL AND PANCREAS TRANSPLANT
     Dosage: 12 MILLIGRAM DAILY; 6 MG, TWICE DAILY AFTER DELIVERY
     Route: 065
  7. FUROSEMIDE. [Concomitant]
     Active Substance: FUROSEMIDE
     Indication: HYPERTENSIVE HEART DISEASE
     Dosage: 40 MILLIGRAM DAILY;
     Route: 065
  8. METHYLPREDNISOLONE. [Concomitant]
     Active Substance: METHYLPREDNISOLONE
     Indication: RENAL AND PANCREAS TRANSPLANT
     Route: 065
     Dates: start: 199412
  9. ATG [Concomitant]
     Active Substance: LAPINE T-LYMPHOCYTE IMMUNE GLOBULIN
     Indication: IMMUNE TOLERANCE INDUCTION
     Dosage: 1200 MG, OVER 9 DAYS
     Route: 042
  10. METHYLDOPA. [Concomitant]
     Active Substance: METHYLDOPA
     Dosage: 500 MILLIGRAM DAILY; 500 MG, ONCE DAILY, WAS ADDED IN THE SECOND TRIMESTER
     Route: 065
  11. AZATHIOPRINE. [Concomitant]
     Active Substance: AZATHIOPRINE
     Indication: RENAL AND PANCREAS TRANSPLANT
     Dosage: UNK UNK, UNKNOWN FREQ.
     Route: 065

REACTIONS (9)
  - Blood creatinine increased [Unknown]
  - Off label use [Unknown]
  - Transaminases increased [Unknown]
  - Exposure during pregnancy [Unknown]
  - Escherichia urinary tract infection [Unknown]
  - Oesophagitis [Unknown]
  - Hyperemesis gravidarum [Unknown]
  - Endocarditis [Recovered/Resolved]
  - Escherichia sepsis [Recovered/Resolved]
